FAERS Safety Report 25103993 (Version 1)
Quarter: 2025Q1

REPORT INFORMATION
  Report Type: Spontaneous
  Country: US (occurrence: US)
  Receive Date: 20250321
  Receipt Date: 20250321
  Transmission Date: 20250409
  Serious: Yes (Life-Threatening, Other)
  Sender: BAXTER
  Company Number: US-BAXTER-2025BAX012736

PATIENT

DRUGS (1)
  1. NOREPINEPHRINE BITARTRATE [Suspect]
     Active Substance: NOREPINEPHRINE BITARTRATE
     Route: 041

REACTIONS (3)
  - Blood pressure decreased [Unknown]
  - Product administration error [Unknown]
  - Device infusion issue [Unknown]

NARRATIVE: CASE EVENT DATE: 20250222
